FAERS Safety Report 16639646 (Version 1)
Quarter: 2019Q3

REPORT INFORMATION
  Report Type: Spontaneous
  Country: US (occurrence: US)
  Receive Date: 20190727
  Receipt Date: 20190727
  Transmission Date: 20191004
  Serious: No
  Sender: FDA-Public Use
  Company Number: US-ZYDUS-036459

PATIENT
  Age: 63 Year
  Sex: Female

DRUGS (1)
  1. CHOLESTYRAMINE. [Suspect]
     Active Substance: CHOLESTYRAMINE
     Indication: ANAL INCONTINENCE
     Route: 048
     Dates: start: 20190413

REACTIONS (4)
  - Drug ineffective [Not Recovered/Not Resolved]
  - Product residue present [Not Recovered/Not Resolved]
  - Product taste abnormal [Not Recovered/Not Resolved]
  - Product physical consistency issue [Not Recovered/Not Resolved]

NARRATIVE: CASE EVENT DATE: 20190414
